FAERS Safety Report 18212574 (Version 1)
Quarter: 2020Q3

REPORT INFORMATION
  Report Type: Report from Study
  Country: None (occurrence: US)
  Receive Date: 20200831
  Receipt Date: 20200831
  Transmission Date: 20201103
  Serious: Yes (Hospitalization)
  Sender: FDA-Public Use
  Company Number: US-ABBVIE-20K-163-3476095-00

PATIENT
  Sex: Male

DRUGS (3)
  1. VENCLEXTA [Suspect]
     Active Substance: VENETOCLAX
     Route: 048
     Dates: start: 20200409
  2. VENCLEXTA [Suspect]
     Active Substance: VENETOCLAX
     Indication: ACUTE MYELOID LEUKAEMIA
     Route: 048
     Dates: start: 20190125, end: 20200408
  3. IDHIFA [Suspect]
     Active Substance: ENASIDENIB MESYLATE
     Indication: ACUTE MYELOID LEUKAEMIA
     Route: 048
     Dates: start: 20200512

REACTIONS (9)
  - Decreased appetite [Unknown]
  - Dyspnoea [Unknown]
  - Emotional distress [Unknown]
  - Nausea [Unknown]
  - Blood count abnormal [Unknown]
  - Cough [Unknown]
  - Boredom [Unknown]
  - Sepsis [Unknown]
  - Anal incontinence [Unknown]

NARRATIVE: CASE EVENT DATE: 2020
